FAERS Safety Report 17191367 (Version 1)
Quarter: 2019Q4

REPORT INFORMATION
  Report Type: Spontaneous
  Country: US (occurrence: US)
  Receive Date: 20191223
  Receipt Date: 20191223
  Transmission Date: 20200122
  Serious: No
  Sender: FDA-Public Use
  Company Number: US-ALKERMES INC.-ALK-2019-005623

PATIENT
  Age: 26 Year
  Sex: Male
  Weight: 126.98 kg

DRUGS (7)
  1. ARISTADA [Suspect]
     Active Substance: ARIPIPRAZOLE LAUROXIL
     Indication: BIPOLAR DISORDER
     Dosage: UNK, QMO
     Route: 030
     Dates: start: 20191116
  2. ARISTADA [Suspect]
     Active Substance: ARIPIPRAZOLE LAUROXIL
     Dosage: UNK, QMO
     Route: 030
     Dates: start: 20191023, end: 20191023
  3. ARISTADA [Suspect]
     Active Substance: ARIPIPRAZOLE LAUROXIL
     Dosage: UNK, QMO
     Route: 030
     Dates: start: 20190925, end: 20190925
  4. ARISTADA [Suspect]
     Active Substance: ARIPIPRAZOLE LAUROXIL
     Dosage: UNK, QMO
     Route: 030
     Dates: start: 2017
  5. ARISTADA [Suspect]
     Active Substance: ARIPIPRAZOLE LAUROXIL
     Dosage: UNK, QMO
     Route: 030
     Dates: start: 2018, end: 2018
  6. SEROQUEL [Concomitant]
     Active Substance: QUETIAPINE FUMARATE
     Indication: PRODUCT USED FOR UNKNOWN INDICATION
     Dosage: UNK
  7. OTHER THERAPEUTIC PRODUCTS [Concomitant]
     Active Substance: UNSPECIFIED INGREDIENT
     Indication: THYROID DISORDER

REACTIONS (7)
  - Thirst [Not Recovered/Not Resolved]
  - Pollakiuria [Not Recovered/Not Resolved]
  - Blood glucose increased [Unknown]
  - Compulsive shopping [Unknown]
  - Off label use [Not Recovered/Not Resolved]
  - Binge eating [Not Recovered/Not Resolved]
  - Polydipsia [Not Recovered/Not Resolved]

NARRATIVE: CASE EVENT DATE: 2017
